FAERS Safety Report 17145996 (Version 1)
Quarter: 2019Q4

REPORT INFORMATION
  Report Type: Spontaneous
  Country: BR (occurrence: BR)
  Receive Date: 20191212
  Receipt Date: 20191212
  Transmission Date: 20200122
  Serious: Yes (Other)
  Sender: FDA-Public Use
  Company Number: BR-ASTRAZENECA-2019SF57089

PATIENT
  Age: 22810 Day
  Sex: Female

DRUGS (5)
  1. SYMBICORT [Suspect]
     Active Substance: BUDESONIDE\FORMOTEROL FUMARATE DIHYDRATE
     Dosage: UP TO 7 TIMES A DAY UNKNOWN
     Route: 055
  2. SYMBICORT [Suspect]
     Active Substance: BUDESONIDE\FORMOTEROL FUMARATE DIHYDRATE
     Dosage: THREE OR FOUR TIMES A DAY UNKNOWN
     Route: 055
  3. COUGH SYRUP [Concomitant]
     Active Substance: DEXTROMETHORPHAN HYDROBROMIDE\GUAIFENESIN
  4. SYMBICORT [Suspect]
     Active Substance: BUDESONIDE\FORMOTEROL FUMARATE DIHYDRATE
     Dosage: 4.5/160 MCG, UNKNOWN UNKNOWN
     Route: 055
  5. ATROVENT [Concomitant]
     Active Substance: IPRATROPIUM BROMIDE
     Indication: ASTHMA
     Route: 055

REACTIONS (4)
  - Asthmatic crisis [Recovered/Resolved]
  - Product use issue [Not Recovered/Not Resolved]
  - Off label use of device [Not Recovered/Not Resolved]
  - Pneumonia [Recovered/Resolved]

NARRATIVE: CASE EVENT DATE: 20190827
